FAERS Safety Report 19299768 (Version 1)
Quarter: 2021Q2

REPORT INFORMATION
  Report Type: Spontaneous
  Country: BR (occurrence: BR)
  Receive Date: 20210524
  Receipt Date: 20210524
  Transmission Date: 20210717
  Serious: Yes (Other)
  Sender: FDA-Public Use
  Company Number: BR-JNJFOC-20210539664

PATIENT
  Age: 6 Decade
  Sex: Female
  Weight: 69 kg

DRUGS (3)
  1. SIMPONI [Suspect]
     Active Substance: GOLIMUMAB
     Indication: RHEUMATOID ARTHRITIS
     Route: 058
  2. SIMPONI [Suspect]
     Active Substance: GOLIMUMAB
     Route: 058
  3. TOFACITINIB [Concomitant]
     Active Substance: TOFACITINIB
     Dosage: SUSPENDED THE USE NOW

REACTIONS (1)
  - Tuberculosis [Recovered/Resolved]
